FAERS Safety Report 7604296-4 (Version None)
Quarter: 2011Q3

REPORT INFORMATION
  Report Type: 
  Country: None (occurrence: None)
  Receive Date: 20110712
  Receipt Date: 20110628
  Transmission Date: 20111222
  Serious: Yes (Disabling, Other)
  Sender: FDA-Public Use
  Company Number: PHHY2011BR58554

PATIENT
  Sex: Male

DRUGS (8)
  1. PHENYTOIN [Suspect]
     Dosage: 100 MG, UNK
  2. ENALAPRIL MALEATE [Suspect]
     Dosage: 10 MG, UNK
  3. HYDROCHLOROTHIAZIDE [Suspect]
     Dosage: 25 MG, UNK
  4. LIORESAL [Suspect]
     Dosage: 10 MG, UNK
  5. TRILEPTAL [Suspect]
     Dosage: 300 MG, UNK
  6. LOSARTAN POTASSIUM [Suspect]
     Dosage: 50 MG, UNK
  7. PLAVIX [Suspect]
     Dosage: 75 MG, UNK
  8. CLONIDINE HYDROCHLORIDE [Suspect]
     Dosage: 0.2 MG, UNK

REACTIONS (5)
  - ABASIA [None]
  - MOVEMENT DISORDER [None]
  - PAIN [None]
  - CEREBROVASCULAR ACCIDENT [None]
  - SPEECH DISORDER [None]
